FAERS Safety Report 21265552 (Version 1)
Quarter: 2022Q3

REPORT INFORMATION
  Report Type: Spontaneous
  Country: US (occurrence: None)
  Receive Date: 20220827
  Receipt Date: 20220827
  Transmission Date: 20221027
  Serious: Yes (Disabling)
  Sender: FDA-Public Use
  Company Number: None

PATIENT
  Age: 27 Year
  Sex: Female
  Weight: 83.25 kg

DRUGS (1)
  1. MYORISAN [Suspect]
     Active Substance: ISOTRETINOIN

REACTIONS (7)
  - Gait disturbance [None]
  - Myalgia [None]
  - Tendon pain [None]
  - Arthralgia [None]
  - Head discomfort [None]
  - Tinnitus [None]
  - Haematochezia [None]

NARRATIVE: CASE EVENT DATE: 20220827
